FAERS Safety Report 25143576 (Version 1)
Quarter: 2025Q2

REPORT INFORMATION
  Report Type: Spontaneous
  Country: US (occurrence: US)
  Receive Date: 20250401
  Receipt Date: 20250401
  Transmission Date: 20250716
  Serious: No
  Sender: STALLERGENES
  Company Number: US-STALCOR-2025-AER-00664

PATIENT
  Age: 15 Year
  Sex: Male

DRUGS (1)
  1. ENGLISH WALNUT [Suspect]
     Active Substance: ENGLISH WALNUT
     Indication: Product used for unknown indication
     Route: 003

REACTIONS (2)
  - Drug ineffective [Unknown]
  - No adverse event [Unknown]
